FAERS Safety Report 6725471-7 (Version None)
Quarter: 2010Q2

REPORT INFORMATION
  Report Type: 
  Country: None (occurrence: None)
  Receive Date: 20100513
  Receipt Date: 20100513
  Transmission Date: 20101027
  Serious: No
  Sender: FDA-Public Use
  Company Number: None

PATIENT
  Age: 3 Year
  Sex: Female

DRUGS (1)
  1. SINGULAIR [Suspect]
     Indication: ASTHMA
     Dosage: DAILY
     Dates: start: 20000101, end: 20080101

REACTIONS (5)
  - ANXIETY [None]
  - NIGHTMARE [None]
  - POOR QUALITY SLEEP [None]
  - STRESS [None]
  - SUICIDAL IDEATION [None]
